FAERS Safety Report 9407281 (Version 1)
Quarter: 2013Q3

REPORT INFORMATION
  Report Type: Spontaneous
  Country: FR (occurrence: FR)
  Receive Date: 20130718
  Receipt Date: 20130718
  Transmission Date: 20140515
  Serious: Yes (Life-Threatening)
  Sender: FDA-Public Use
  Company Number: FR-ASTRAZENECA-2013SE51859

PATIENT
  Age: 34 Year
  Sex: Female

DRUGS (7)
  1. XYLOCAINE [Suspect]
     Indication: LOCAL ANAESTHESIA
     Route: 051
     Dates: start: 20130614, end: 20130614
  2. BUPIVACAINE MYLAN [Suspect]
     Dosage: ONCE/SINGLE ADMINISTRATION
     Route: 051
     Dates: start: 20130614, end: 20130614
  3. MORPHINE RENAUDIN [Suspect]
     Dosage: ONCE/SINGLE ADMINISTRATION
     Route: 051
     Dates: start: 20130614, end: 20130614
  4. SUFENTANIL MYLAN [Suspect]
     Dosage: ONCE/SINGLE ADMINISTRATION
     Route: 051
     Dates: start: 20130614, end: 20130614
  5. CEFAZOLINE PANPHARMA [Suspect]
     Dosage: 2G / 10 ML, ONCE/SINGLE ADMINISTRATION
     Route: 051
     Dates: start: 20130614, end: 20130614
  6. EPHEDRINE AGUETTANT [Suspect]
     Dosage: ONCE/SINGLE ADMINISTRATION
     Route: 051
     Dates: start: 20130614, end: 20130614
  7. NEOSYNEPHRINE AP HP [Suspect]
     Dosage: ONCE/SINGLE ADMINISTRATION
     Route: 051
     Dates: start: 20130614, end: 20130614

REACTIONS (3)
  - Shock [Recovered/Resolved]
  - Hypotension [Recovered/Resolved]
  - Erythema [Recovered/Resolved]
